FAERS Safety Report 7659238-2 (Version None)
Quarter: 2011Q3

REPORT INFORMATION
  Report Type: 
  Country: None (occurrence: None)
  Receive Date: 20110805
  Receipt Date: 20110726
  Transmission Date: 20111222
  Serious: Yes (Death, Other)
  Sender: FDA-Public Use
  Company Number: SG-ROCHE-728893

PATIENT

DRUGS (3)
  1. TS-1 [Concomitant]
     Indication: GASTRIC CANCER
     Route: 048
  2. HERCEPTIN [Suspect]
     Indication: GASTRIC CANCER
     Route: 042
  3. OXALIPLATIN [Concomitant]
     Indication: GASTRIC CANCER
     Route: 042

REACTIONS (2)
  - INTERSTITIAL LUNG DISEASE [None]
  - DEATH [None]
